FAERS Safety Report 14444758 (Version 1)
Quarter: 2018Q1

REPORT INFORMATION
  Report Type: Other
  Country: US (occurrence: US)
  Receive Date: 20180126
  Receipt Date: 20180126
  Transmission Date: 20180509
  Serious: Yes (Hospitalization)
  Sender: FDA-Public Use
  Company Number: US-B. BRAUN MEDICAL INC.-2040847

PATIENT
  Age: 22 Year
  Sex: Male

DRUGS (2)
  1. 0.9% SODIUM CHLORIDE INJECTION USP 0264-1800-31 0264-1800-32 [Suspect]
     Active Substance: SODIUM CHLORIDE
     Indication: INTENTIONAL PRODUCT MISUSE
     Route: 058
  2. 0.9% SODIUM CHLORIDE INJECTION USP 0264-1800-31 0264-1800-32 [Suspect]
     Active Substance: SODIUM CHLORIDE
     Indication: SCROTAL SWELLING
     Route: 058

REACTIONS (2)
  - Necrotising soft tissue infection [None]
  - Scrotal inflammation [None]
